FAERS Safety Report 21040773 (Version 4)
Quarter: 2022Q4

REPORT INFORMATION
  Report Type: Spontaneous
  Country: US (occurrence: US)
  Receive Date: 20220704
  Receipt Date: 20221013
  Transmission Date: 20230113
  Serious: Yes (Hospitalization, Other)
  Sender: FDA-Public Use
  Company Number: US-BRISTOL-MYERS SQUIBB COMPANY-2022-063600

PATIENT
  Age: 63 Year
  Sex: Female
  Weight: 141.97 kg

DRUGS (47)
  1. REVLIMID [Suspect]
     Active Substance: LENALIDOMIDE
     Indication: Plasma cell myeloma
     Dosage: ONCE DAILY X 14 DAYS THEN 7 DAY OFF
     Route: 048
     Dates: start: 20220525
  2. REVLIMID [Suspect]
     Active Substance: LENALIDOMIDE
     Dosage: TAKE ONE CAPSULE BY MOUTH ON DAYS 1 TO 14 FOLLOWED BY A 7 DAY REST. TAKE WHOLE WITH A GLASS OF WATER
     Route: 048
     Dates: start: 20220526
  3. REVLIMID [Suspect]
     Active Substance: LENALIDOMIDE
     Dosage: DAILY 14 DAYS
     Route: 048
     Dates: start: 20220608
  4. ACYCLOVIR [Concomitant]
     Active Substance: ACYCLOVIR
     Indication: Infection
     Route: 065
  5. ACYCLOVIR [Concomitant]
     Active Substance: ACYCLOVIR
     Indication: Prophylaxis
     Route: 048
  6. DEXAMETHASONE [Concomitant]
     Active Substance: DEXAMETHASONE
     Indication: Product used for unknown indication
     Route: 065
  7. DEXAMETHASONE [Concomitant]
     Active Substance: DEXAMETHASONE
     Dosage: TAKE 1 TABLET BY MOUTH TWICE DAILY
     Route: 048
  8. DEXAMETHASONE [Concomitant]
     Active Substance: DEXAMETHASONE
     Dosage: TAKE 1 TABLET BY MOUTH TWICE DAILY FOR 2 DAYS BEFORE CHEMOTHERAPY
     Route: 048
  9. DEXAMETHASONE [Concomitant]
     Active Substance: DEXAMETHASONE
     Dosage: TAKE 5 TABLETS BY MOUTH 1 TO 3 HOURS BEFORE DARATUMUMAB AND REPEAT DAY AFTER (TAKE WITH FOOD)
     Route: 048
  10. VELCADE [Concomitant]
     Active Substance: BORTEZOMIB
     Indication: Product used for unknown indication
     Dosage: 1 VIAL
     Route: 065
  11. TYLENOL [Concomitant]
     Active Substance: ACETAMINOPHEN
     Indication: Product used for unknown indication
     Route: 065
  12. ALIVE WOMENS ENERGY [Concomitant]
     Indication: Product used for unknown indication
     Dosage: ALIVE WOMENS ENERGY TABLETS
     Route: 065
  13. ALBUTEROL SULFATE [Concomitant]
     Active Substance: ALBUTEROL SULFATE
     Indication: Wheezing
     Dosage: INH (200 PUFFS) 18 GRAMS, INHALE 2 PUFFS BY MOUTH EVERY 6 HOURS AS NEEDED.
     Route: 048
  14. ALBUTEROL SULFATE [Concomitant]
     Active Substance: ALBUTEROL SULFATE
     Indication: Dyspnoea
  15. AMOXICILLIN\CLAVULANIC ACID [Concomitant]
     Active Substance: AMOXICILLIN\CLAVULANIC ACID
     Indication: Product used for unknown indication
     Dosage: 875-125MG, 1 TABLET BY MOUTH EVERY 12 HOURS FOR 7 DAYS
     Route: 048
  16. CHOLESTYRAMINE [Concomitant]
     Active Substance: CHOLESTYRAMINE
     Indication: Product used for unknown indication
     Dosage: 4 GRAM PACKETS 60S, MIX 1 PACKET IN  APPLESAUCE AND  TAKE AFTER LUNCH  AND AT BEDTIME. TAKE 2 HOURS
     Route: 065
  17. FLUCONAZOLE [Concomitant]
     Active Substance: FLUCONAZOLE
     Indication: Product used for unknown indication
     Dosage: TAKE 1 TABLET BY MOUTH DAILY FOR 2 DAYS
     Route: 048
  18. FLUCONAZOLE [Concomitant]
     Active Substance: FLUCONAZOLE
     Route: 048
  19. HYDROMORPHONE [Concomitant]
     Active Substance: HYDROMORPHONE
     Indication: Back pain
     Dosage: TAKE 1 TABLET BY MOUTH EVERY 8 HOURS AS NEEDED
     Route: 048
  20. HYDROMORPHONE [Concomitant]
     Active Substance: HYDROMORPHONE
     Indication: Pain
     Dosage: TAKE 1 TABLET BY MOUTH EVERY 12 HOURS
     Route: 048
  21. HYDROMORPHONE [Concomitant]
     Active Substance: HYDROMORPHONE
     Dosage: TAKE 1 TABLET BY MOUTH EVERY 4 HOURS AS NEEDED
     Route: 048
  22. KETOCONAZOLE [Concomitant]
     Active Substance: KETOCONAZOLE
     Indication: Product used for unknown indication
     Dosage: APPLY TOPICALLY TO PERIRECTAL AREA DAILY
     Route: 061
  23. KETOCONAZOLE [Concomitant]
     Active Substance: KETOCONAZOLE
     Dosage: APPLY TO THE AFFECTED AREA TWICE DAILY FOR 4 WEEKS OR UNTIL CLINICAL RESPONSE ?IS NOTED
     Route: 065
  24. INSULIN LISPRO [Concomitant]
     Active Substance: INSULIN LISPRO
     Indication: Product used for unknown indication
     Dosage: 100U/3ML KWIKPEN 3ML?INJECT UP TO 30 UNITS UNDER THE SKIN THREE TIMES DALY BEFORE MEALS ACCORDING TO
     Route: 065
  25. LOSARTAN [Concomitant]
     Active Substance: LOSARTAN
     Indication: Product used for unknown indication
     Route: 048
  26. LANTUS SOLOSTAR [Concomitant]
     Active Substance: INSULIN GLARGINE
     Indication: Product used for unknown indication
     Dosage: ADMINISTER 10 UNITS UNDER THE SKIN DAILY
     Route: 065
  27. LANTUS SOLOSTAR [Concomitant]
     Active Substance: INSULIN GLARGINE
     Dosage: ADMINISTER 60 UNITS UNDER THE SKIN EVERY NIGHT AT BEDTIME
     Route: 065
  28. LANTUS SOLOSTAR [Concomitant]
     Active Substance: INSULIN GLARGINE
     Dosage: INJECT 32 UNITS UNDER THE SKIN IN THE MORNING
     Route: 065
  29. LORAZEPAM [Concomitant]
     Active Substance: LORAZEPAM
     Indication: Sleep disorder
     Dosage: TAKE 1 TABLET BY MOUTH 20 MINUTES BEFORE MRI AS DIRECTED AS NEEDED FOR SLEEP
     Route: 048
  30. LORAZEPAM [Concomitant]
     Active Substance: LORAZEPAM
     Dosage: TAKE 1 TABLET BY MOUTH 45 MINUTES PRIOR TO SCAN. REPEAT JUST PRIOR IF NEEDED AS DIRECTED
     Route: 048
  31. METFORMIN HYDROCHLORIDE [Concomitant]
     Active Substance: METFORMIN HYDROCHLORIDE
     Indication: Product used for unknown indication
     Dosage: WITH DINNER
     Route: 048
  32. METFORMIN HYDROCHLORIDE [Concomitant]
     Active Substance: METFORMIN HYDROCHLORIDE
     Route: 048
  33. METHOCARBAMOL [Concomitant]
     Active Substance: METHOCARBAMOL
     Indication: Product used for unknown indication
     Dosage: TAKE 1 AND 1/2 TABLETS BY MOUTH EVERY 6 HOURS. NOT TO EXCEED 6 TABLETS DAILY
     Route: 048
  34. MORPHINE SUL ER [Concomitant]
     Indication: Product used for unknown indication
     Route: 048
  35. MORPHINE SUL ER [Concomitant]
     Route: 048
  36. NARCAN [Concomitant]
     Active Substance: NALOXONE HYDROCHLORIDE
     Indication: Product used for unknown indication
     Dosage: NASAL SPRAY 2 PACK, 4 MG/0.1ML.?SPRAY CONTENTS OF ONE SPRAYER(O.I ML) INTO ONE NOSTRIL. REPEAT IN 2-
     Route: 065
  37. NORTRIPTYLINE [Concomitant]
     Active Substance: NORTRIPTYLINE
     Indication: Product used for unknown indication
     Dosage: TAKE 1 CAPSULE(25 MG) BY MOUTH EVERY NIGHT AT BEDTIME FOR 7 DAYS THEN TAKE 2 CAPSULES BY MOUTH AT BE
     Route: 048
  38. ONDANSETRON [Concomitant]
     Active Substance: ONDANSETRON
     Indication: Nausea
     Dosage: DISSOLVE 1 TABLET ON THE TONGUE EVERY 6 HOURS AS NEEDED FOR NAUSEA OR VOMITING
     Route: 048
  39. ONDANSETRON [Concomitant]
     Active Substance: ONDANSETRON
     Indication: Vomiting
  40. OXYCODONE [Concomitant]
     Active Substance: OXYCODONE
     Indication: Pain
     Dosage: 10 IMMEDIATE REL TABLETS?TAKE 1 TABLET BY MOUTH EVERY 4 TO 6 HOURS AS NEEDED FOR PAIN
     Route: 048
  41. OXYCODONE [Concomitant]
     Active Substance: OXYCODONE
     Dosage: 5MG  IMMEDIATE REL TABLETS?TAKE 1 TABLET BY MOUTH EVERY 4 TO 6 HOURS AS NEEDED FOR PAIN
     Route: 048
  42. OZEMPIC [Concomitant]
     Active Substance: SEMAGLUTIDE
     Indication: Product used for unknown indication
     Dosage: 0.25 OR 0.5MG/DOS 1X2MG PEN?INJECT 0.25 MG UNDER THE SKIN EVERY 7 DAYS
     Route: 065
  43. PANTOPRAZOLE [Concomitant]
     Active Substance: PANTOPRAZOLE
     Indication: Product used for unknown indication
     Route: 048
  44. SIMVASTATIN [Concomitant]
     Active Substance: SIMVASTATIN
     Indication: Product used for unknown indication
     Dosage: EVERY NIGHT
     Route: 048
  45. SUCRALFATE [Concomitant]
     Active Substance: SUCRALFATE
     Indication: Product used for unknown indication
     Route: 048
  46. VITAMIN D2 [Concomitant]
     Active Substance: ERGOCALCIFEROL
     Indication: Product used for unknown indication
     Route: 048
  47. FUROSEMIDE [Concomitant]
     Active Substance: FUROSEMIDE
     Indication: Product used for unknown indication
     Dosage: TAKE 1 TABLET BY MOUTH DAILY
     Route: 065

REACTIONS (15)
  - Pyrexia [Unknown]
  - Heart rate increased [Unknown]
  - Tremor [Unknown]
  - Paraesthesia [Unknown]
  - Sciatica [Unknown]
  - Joint swelling [Unknown]
  - Headache [Unknown]
  - Visual impairment [Unknown]
  - Fatigue [Unknown]
  - Dyspnoea [Unknown]
  - Condition aggravated [Unknown]
  - Abdominal pain [Unknown]
  - Nausea [Unknown]
  - Swelling of eyelid [Unknown]
  - Off label use [Unknown]

NARRATIVE: CASE EVENT DATE: 20220601
